APPROVED DRUG PRODUCT: REGADENOSON
Active Ingredient: REGADENOSON
Strength: 0.4MG/5ML (0.08MG/ML)
Dosage Form/Route: SOLUTION;INTRAVENOUS
Application: A213856 | Product #001 | TE Code: AP
Applicant: MYLAN PHARMACEUTICALS INC
Approved: Apr 4, 2023 | RLD: No | RS: No | Type: RX